FAERS Safety Report 5530520-8 (Version None)
Quarter: 2007Q4

REPORT INFORMATION
  Report Type: 
  Country: None (occurrence: None)
  Receive Date: 20071130
  Receipt Date: 20071123
  Transmission Date: 20080405
  Serious: Yes (Hospitalization)
  Sender: FDA-Public Use
  Company Number: FR-AVENTIS-200713737FR

PATIENT
  Age: 93 Year
  Sex: Female

DRUGS (8)
  1. LOVENOX [Suspect]
     Route: 058
     Dates: start: 20070304, end: 20070414
  2. ZYVOX [Suspect]
     Route: 048
     Dates: start: 20070314, end: 20070416
  3. TRIFLUCAN [Suspect]
     Indication: OROPHARYNGEAL CANDIDIASIS
     Route: 048
     Dates: start: 20070314, end: 20070417
  4. LASIX [Concomitant]
     Route: 048
  5. ATARAX                             /00058402/ [Concomitant]
     Route: 048
  6. MONICOR LP [Concomitant]
     Route: 048
  7. ACETAMINOPHEN [Concomitant]
     Route: 048
  8. OXAZEPAM [Concomitant]
     Indication: ANXIETY
     Route: 048

REACTIONS (4)
  - ANAEMIA [None]
  - NEUTROPENIA [None]
  - PANCYTOPENIA [None]
  - THROMBOCYTOPENIA [None]
